FAERS Safety Report 17756729 (Version 5)
Quarter: 2023Q4

REPORT INFORMATION
  Report Type: Spontaneous
  Country: BR (occurrence: BR)
  Receive Date: 20200507
  Receipt Date: 20231130
  Transmission Date: 20240110
  Serious: Yes (Other)
  Sender: FDA-Public Use
  Company Number: BR-JNJFOC-20200500002

PATIENT
  Sex: Female
  Weight: 78 kg

DRUGS (4)
  1. SIMPONI [Suspect]
     Active Substance: GOLIMUMAB
     Indication: Ankylosing spondylitis
     Dosage: STARTED 14 MONTHS AGO
     Route: 058
     Dates: start: 2019
  2. PREGABALIN [Concomitant]
     Active Substance: PREGABALIN
     Route: 065
  3. AZULFIDINE [Concomitant]
     Active Substance: SULFASALAZINE
     Route: 065
  4. GABAPENTIN [Concomitant]
     Active Substance: GABAPENTIN
     Indication: Pain

REACTIONS (5)
  - Pneumonia [Unknown]
  - COVID-19 [Recovered/Resolved]
  - Product dose omission issue [Unknown]
  - Needle issue [Unknown]
  - Ear infection [Unknown]

NARRATIVE: CASE EVENT DATE: 20200101
